FAERS Safety Report 15656644 (Version 2)
Quarter: 2018Q4

REPORT INFORMATION
  Report Type: Report from Study
  Country: ZA (occurrence: ZA)
  Receive Date: 20181126
  Receipt Date: 20181130
  Transmission Date: 20190205
  Serious: Yes (Life-Threatening, Hospitalization)
  Sender: FDA-Public Use
  Company Number: ZA-SA-2018SA249384

PATIENT
  Age: 65 Year
  Sex: Female

DRUGS (11)
  1. VILDAGLIPTIN [Concomitant]
     Active Substance: VILDAGLIPTIN
     Dosage: 50 MG, (AS-50 MG | AB-50 MG)
     Route: 065
     Dates: start: 20180701
  2. GLUCOPHAGE [Concomitant]
     Active Substance: METFORMIN HYDROCHLORIDE
     Dosage: 1500 MG AS
     Route: 065
     Dates: start: 20080701
  3. ALMADIN [Concomitant]
     Dosage: 10 MG, BB
     Route: 065
  4. DIOVAN [Concomitant]
     Active Substance: VALSARTAN
     Dosage: 320 MG, BB
     Route: 065
  5. INSULIN GLARGINE [Suspect]
     Active Substance: INSULIN GLARGINE
     Indication: TYPE 2 DIABETES MELLITUS
     Dosage: 59 U, QD
     Route: 065
     Dates: start: 20130101
  6. CRESTOR [Concomitant]
     Active Substance: ROSUVASTATIN CALCIUM
     Dosage: 5 MG, AS
     Route: 065
  7. ELTROXIN [Concomitant]
     Active Substance: LEVOTHYROXINE
     Dosage: 0.1 MG, BB
     Route: 065
  8. ESCITALOPRAM [Concomitant]
     Active Substance: ESCITALOPRAM OXALATE
     Dosage: 10 MG, AS
     Route: 065
  9. INSULIN GLARGINE [Suspect]
     Active Substance: INSULIN GLARGINE
     Dosage: 63 U, QD (AT NIGHT)
     Route: 065
     Dates: start: 20180725
  10. INSULIN GLARGINE [Suspect]
     Active Substance: INSULIN GLARGINE
     Dosage: 30 U, BID
     Route: 065
  11. DYNA INDAPAMIDE [Concomitant]
     Active Substance: INDAPAMIDE
     Dosage: 1.5 MG, BB
     Route: 065

REACTIONS (11)
  - Hospitalisation [Unknown]
  - Sleep apnoea syndrome [Not Recovered/Not Resolved]
  - Hypoglycaemia [Recovered/Resolved]
  - Peripheral swelling [Not Recovered/Not Resolved]
  - Off label use [Unknown]
  - Palpitations [Recovered/Resolved]
  - Glycosylated haemoglobin increased [Unknown]
  - Unevaluable event [Not Recovered/Not Resolved]
  - Hyperhidrosis [Recovered/Resolved]
  - Nervousness [Recovered/Resolved]
  - Fluid retention [Not Recovered/Not Resolved]

NARRATIVE: CASE EVENT DATE: 20181020
